FAERS Safety Report 17308002 (Version 1)
Quarter: 2020Q1

REPORT INFORMATION
  Report Type: Spontaneous
  Country: US (occurrence: US)
  Receive Date: 20200106
  Receipt Date: 20200106
  Transmission Date: 20200409
  Serious: Yes (Hospitalization)
  Sender: FDA-Public Use
  Company Number: None

PATIENT
  Age: 77 Year
  Sex: Male
  Weight: 83 kg

DRUGS (2)
  1. ETOPOSIDE (ETOPOSIDE 100MG/VIL INJ) [Suspect]
     Active Substance: ETOPOSIDE
     Indication: SMALL CELL LUNG CANCER METASTATIC
     Route: 042
     Dates: start: 20190610, end: 20190708
  2. CARBOPLATIN (CARBOPLATIN 450MG/VIL INJ) [Suspect]
     Active Substance: CARBOPLATIN
     Indication: SMALL CELL LUNG CANCER METASTATIC
     Route: 042
     Dates: start: 20190610, end: 20190709

REACTIONS (9)
  - Oesophagitis [None]
  - Dysphagia [None]
  - Fungal infection [None]
  - Lymphadenopathy mediastinal [None]
  - Febrile neutropenia [None]
  - Mucosal inflammation [None]
  - Odynophagia [None]
  - Bacterial infection [None]
  - Vomiting [None]

NARRATIVE: CASE EVENT DATE: 20190709
